FAERS Safety Report 9285994 (Version 1)
Quarter: 2013Q2

REPORT INFORMATION
  Report Type: Spontaneous
  Country: ES (occurrence: ES)
  Receive Date: 20130513
  Receipt Date: 20130513
  Transmission Date: 20140414
  Serious: Yes (Death, Hospitalization)
  Sender: FDA-Public Use
  Company Number: ES-ASTRAZENECA-2013SE32362

PATIENT
  Sex: Male

DRUGS (2)
  1. BRILIQUE [Suspect]
     Route: 048
     Dates: start: 201209
  2. ADIRO [Concomitant]

REACTIONS (2)
  - Neoplasm malignant [Fatal]
  - Subdural haematoma [Unknown]
